FAERS Safety Report 25360159 (Version 1)
Quarter: 2025Q2

REPORT INFORMATION
  Report Type: Spontaneous
  Country: AU (occurrence: AU)
  Receive Date: 20250527
  Receipt Date: 20250527
  Transmission Date: 20250717
  Serious: Yes (Other)
  Sender: SANOFI AVENTIS
  Company Number: AU-SA-2025SA148506

PATIENT
  Sex: Female

DRUGS (1)
  1. FABRAZYME [Suspect]
     Active Substance: AGALSIDASE BETA
     Indication: Fabry^s disease
     Dosage: 70 MG, QOW
     Route: 042

REACTIONS (2)
  - Ectopic pregnancy [Recovered/Resolved]
  - Maternal exposure via partner during pregnancy [Recovered/Resolved]

NARRATIVE: CASE EVENT DATE: 20250401
